FAERS Safety Report 18500924 (Version 2)
Quarter: 2020Q4

REPORT INFORMATION
  Report Type: Spontaneous
  Country: US (occurrence: US)
  Receive Date: 20201113
  Receipt Date: 20201223
  Transmission Date: 20210114
  Serious: No
  Sender: FDA-Public Use
  Company Number: US-ASTRAZENECA-2020SF42664

PATIENT
  Sex: Female
  Weight: 79.8 kg

DRUGS (2)
  1. SYMBICORT [Suspect]
     Active Substance: BUDESONIDE\FORMOTEROL FUMARATE DIHYDRATE
     Indication: ASTHMA
     Dosage: 2 PUFFS TWICE DAILY, (2 PUFFS IN THE MORNING, 2 PUFFS IN THE EVENING),160/4.5 MCG
     Route: 055
  2. SYMBICORT [Suspect]
     Active Substance: BUDESONIDE\FORMOTEROL FUMARATE DIHYDRATE
     Indication: PULMONARY CONGESTION
     Dosage: 2 PUFFS TWICE DAILY, (2 PUFFS IN THE MORNING, 2 PUFFS IN THE EVENING),160/4.5 MCG
     Route: 055

REACTIONS (6)
  - Intentional device misuse [Unknown]
  - Cough [Unknown]
  - Product taste abnormal [Unknown]
  - Drug delivery system malfunction [Unknown]
  - Dysphonia [Unknown]
  - Off label use [Unknown]
